FAERS Safety Report 5043091-X (Version None)
Quarter: 2006Q2

REPORT INFORMATION
  Report Type: 
  Country: None (occurrence: None)
  Receive Date: 20060628
  Receipt Date: 20060620
  Transmission Date: 20061013
  Serious: Yes (Hospitalization)
  Sender: FDA-Public Use
  Company Number: FRWYE753120JUN06

PATIENT
  Age: 67 Year
  Sex: Female

DRUGS (5)
  1. EFFEXOR XR [Suspect]
     Indication: DEPRESSION
     Dosage: 75 MG 1X PER 1 DAY ORAL
     Route: 048
     Dates: start: 20060227, end: 20060324
  2. RABEPRAZOLE SODIUM [Concomitant]
  3. DEBRIDAT (TRIMEBUTINE MALEATE) [Concomitant]
  4. NORMACOL (FRANGULA EXTRACT/STERCULIA) [Concomitant]
  5. STRESAM (ETIFOXINE) [Concomitant]

REACTIONS (10)
  - ALANINE AMINOTRANSFERASE INCREASED [None]
  - ASPARTATE AMINOTRANSFERASE INCREASED [None]
  - ASTHENIA [None]
  - BLOOD ALKALINE PHOSPHATASE INCREASED [None]
  - EOSINOPHILIA [None]
  - GAMMA-GLUTAMYLTRANSFERASE INCREASED [None]
  - JAUNDICE [None]
  - PYREXIA [None]
  - TEMPERATURE INTOLERANCE [None]
  - TRANSAMINASES INCREASED [None]
